FAERS Safety Report 12138582 (Version 2)
Quarter: 2016Q1

REPORT INFORMATION
  Report Type: Spontaneous
  Country: FI (occurrence: FI)
  Receive Date: 20160302
  Receipt Date: 20160315
  Transmission Date: 20160526
  Serious: Yes (Life-Threatening, Hospitalization, Other)
  Sender: FDA-Public Use
  Company Number: FI-ASTRAZENECA-2016SE22449

PATIENT
  Age: 24674 Day
  Sex: Female
  Weight: 70 kg

DRUGS (14)
  1. NOVORAPID [Concomitant]
     Active Substance: INSULIN ASPART
     Indication: TYPE 1 DIABETES MELLITUS
     Dosage: 4-6 IU PER DAY
     Route: 058
     Dates: start: 20160107
  2. ORLOC [Concomitant]
     Active Substance: BISOPROLOL FUMARATE
     Indication: CARDIAC DISORDER
     Route: 048
     Dates: start: 20050324
  3. SERENASE [Concomitant]
     Active Substance: HALOPERIDOL
     Dosage: AS REQUIRED
  4. BENZODIAZEPINES [Concomitant]
     Active Substance: BENZODIAZEPINE
  5. SEROQUEL [Suspect]
     Active Substance: QUETIAPINE FUMARATE
     Indication: SCHIZOPHRENIA
     Route: 048
     Dates: start: 20090912, end: 20160113
  6. NICORETTE [Concomitant]
     Active Substance: NICOTINE
  7. MOVICOL [Concomitant]
     Active Substance: POLYETHYLENE GLYCOL 3350\POTASSIUM CHLORIDE\SODIUM BICARBONATE\SODIUM CHLORIDE
     Indication: CONSTIPATION
     Route: 048
     Dates: start: 20130520
  8. COHEMIN DEPOT [Concomitant]
     Indication: VITAMIN B12 DEFICIENCY
     Dosage: 1MG/ML
     Route: 058
     Dates: start: 20140410
  9. LIPITOR [Concomitant]
     Active Substance: ATORVASTATIN CALCIUM
     Indication: HYPERCHOLESTEROLAEMIA
     Route: 048
     Dates: start: 20100107
  10. RISOLID [Concomitant]
     Active Substance: CHLORDIAZEPOXIDE
     Dosage: 10 X 1
  11. ZELDOX [Suspect]
     Active Substance: ZIPRASIDONE
     Indication: SCHIZOPHRENIA
     Route: 048
     Dates: start: 20091125, end: 20160113
  12. PARACETAMOL [Concomitant]
     Active Substance: ACETAMINOPHEN
     Indication: PAIN
     Dosage: 1 GRAM X 3, PER DAY
     Route: 048
     Dates: start: 20130204
  13. LANTUS [Concomitant]
     Active Substance: INSULIN GLARGINE
     Indication: TYPE 1 DIABETES MELLITUS
     Route: 058
     Dates: start: 20160104
  14. CALCICHEW D3 FORTE [Concomitant]
     Active Substance: CALCIUM\CHOLECALCIFEROL
     Indication: BONE DISORDER
     Route: 048
     Dates: start: 20160217

REACTIONS (4)
  - Catatonia [Unknown]
  - Ischaemic stroke [Unknown]
  - Cerebrovascular accident [Unknown]
  - Neuroleptic malignant syndrome [Unknown]

NARRATIVE: CASE EVENT DATE: 20160107
